FAERS Safety Report 16695288 (Version 2)
Quarter: 2020Q4

REPORT INFORMATION
  Report Type: Report from Study
  Country: US (occurrence: US)
  Receive Date: 20190813
  Receipt Date: 20201104
  Transmission Date: 20210113
  Serious: Yes (Hospitalization, Other)
  Sender: FDA-Public Use
  Company Number: US-ROCHE-2367588

PATIENT
  Age: 83 Year
  Sex: Male
  Weight: 85 kg

DRUGS (5)
  1. VEMURAFENIB. [Suspect]
     Active Substance: VEMURAFENIB
     Indication: CRANIOPHARYNGIOMA
     Dosage: LAST DOSE ADMINISTERED OF VEMURAFENIB: 21/JUN/2019
     Route: 065
     Dates: start: 20190616
  2. COBIMETINIB. [Suspect]
     Active Substance: COBIMETINIB
     Indication: CRANIOPHARYNGIOMA
     Dosage: LAST DOSE ADMINISTERED OF COBIMENTINIB: 21/JUN/2019
     Route: 065
     Dates: start: 20190616
  3. HYDRALAZINE [Concomitant]
     Active Substance: HYDRALAZINE HYDROCHLORIDE
  4. PREDNISONE. [Concomitant]
     Active Substance: PREDNISONE
  5. DESMOPRESSIN [Concomitant]
     Active Substance: DESMOPRESSIN

REACTIONS (3)
  - Hyponatraemia [Recovered/Resolved with Sequelae]
  - Hypertension [Recovered/Resolved with Sequelae]
  - Dehydration [Recovered/Resolved with Sequelae]

NARRATIVE: CASE EVENT DATE: 20190622
